FAERS Safety Report 4467007-X (Version None)
Quarter: 2004Q4

REPORT INFORMATION
  Report Type: 
  Country: None (occurrence: None)
  Receive Date: 20041006
  Receipt Date: 20040514
  Transmission Date: 20050328
  Serious: Yes (Hospitalization)
  Sender: FDA-Public Use
  Company Number: JP-JNJFOC-20041000873

PATIENT
  Age: 65 Year
  Sex: Male

DRUGS (8)
  1. DUROTEP [Suspect]
  2. DUROTEP [Suspect]
  3. DUROTEP [Suspect]
     Indication: CANCER PAIN
  4. MORPHINE SULFATE [Suspect]
     Route: 049
  5. MORPHINE SULFATE [Suspect]
     Route: 049
  6. MORPHINE SULFATE [Suspect]
     Indication: CANCER PAIN
     Route: 049
  7. MORPHINE HYDROCHLORIDE [Concomitant]
     Dosage: 0.8-1 G DAILY
     Route: 065
  8. MORPHINE HYDROCHLORIDE [Concomitant]
     Route: 065

REACTIONS (10)
  - ANOREXIA [None]
  - CONSTIPATION [None]
  - DIZZINESS [None]
  - FALL [None]
  - NAUSEA [None]
  - NOCTURIA [None]
  - PAIN EXACERBATED [None]
  - PALPITATIONS [None]
  - SOMNOLENCE [None]
  - THIRST [None]
